FAERS Safety Report 9156622 (Version 1)
Quarter: 2013Q1

REPORT INFORMATION
  Report Type: Spontaneous
  Country: JP (occurrence: None)
  Receive Date: 20130206
  Receipt Date: 20130206
  Transmission Date: 20140127
  Serious: Yes (Other)
  Sender: FDA-Public Use
  Company Number: DSJ-2012-00659

PATIENT
  Age: 39 Year
  Sex: Male

DRUGS (7)
  1. OLMETEC [Suspect]
     Indication: ESSENTIAL HYPERTENSION
     Route: 048
     Dates: start: 20100927, end: 20101121
  2. CALBLOCK [Suspect]
     Indication: PRODUCT USED FOR UNKNOWN INDICATION
     Route: 048
     Dates: start: 20100831, end: 20120326
  3. RASILEZ (ALISKIREN FUMARATE) (ALISKIREN FUMARATE) [Suspect]
     Dates: start: 20100909, end: 20120326
  4. LASIX (FUROSEMIDE) (FUROSEMIDE) [Suspect]
     Dates: start: 20100909, end: 20120326
  5. CRESTOR [Suspect]
     Dates: start: 20100927, end: 20120326
  6. APIDRA (INSULIN GLULISINE) (INSULIN GLULISINE) [Concomitant]
  7. NOVOLIN (INSULIN) (-INSULIN) [Concomitant]

REACTIONS (4)
  - Renal failure chronic [None]
  - Diabetic nephropathy [None]
  - Condition aggravated [None]
  - Blood pressure decreased [None]
